FAERS Safety Report 19907956 (Version 2)
Quarter: 2022Q2

REPORT INFORMATION
  Report Type: Report from Study
  Country: CA (occurrence: CA)
  Receive Date: 20211001
  Receipt Date: 20220602
  Transmission Date: 20220721
  Serious: Yes (Other)
  Sender: FDA-Public Use
  Company Number: CA-TAKEDA-CA202017016

PATIENT
  Age: 65 Year
  Sex: Male

DRUGS (25)
  1. HUMAN IMMUNOGLOBULIN G [Suspect]
     Active Substance: HUMAN IMMUNOGLOBULIN G
     Indication: Secondary immunodeficiency
     Dosage: 10 MILLIGRAM, 1X/WEEK
     Route: 058
     Dates: start: 20200512
  2. HUMAN IMMUNOGLOBULIN G [Suspect]
     Active Substance: HUMAN IMMUNOGLOBULIN G
     Dosage: 10 MILLIGRAM, 1X/WEEK
     Route: 058
     Dates: start: 20200512
  3. HUMAN IMMUNOGLOBULIN G [Suspect]
     Active Substance: HUMAN IMMUNOGLOBULIN G
     Dosage: 10 GRAM, 1/WEEK
     Route: 065
     Dates: start: 20200512
  4. HUMAN IMMUNOGLOBULIN G [Suspect]
     Active Substance: HUMAN IMMUNOGLOBULIN G
     Dosage: 13 GRAM, 1/WEEK
     Route: 065
     Dates: start: 20200512
  5. DOM-LORAZEPAM [Concomitant]
     Dosage: 1 MILLIGRAM
     Route: 048
     Dates: start: 20191212
  6. METRONIDAZOLE [Concomitant]
     Active Substance: METRONIDAZOLE
     Indication: Diverticulitis
     Dosage: 1 DOSAGE FORM, TID
     Route: 048
     Dates: start: 20191211
  7. CIPROFLOXACIN [Concomitant]
     Active Substance: CIPROFLOXACIN
     Indication: Diverticulitis
     Dosage: 1 DOSAGE FORM, BID
     Route: 048
     Dates: start: 20191211
  8. PANTOPRAZOLE SODIUM [Concomitant]
     Active Substance: PANTOPRAZOLE SODIUM
     Dosage: 1 DOSAGE FORM, QD
     Route: 048
     Dates: start: 20191211
  9. FINASTERIDE [Concomitant]
     Active Substance: FINASTERIDE
     Dosage: 1 DOSAGE FORM, QD
     Route: 048
     Dates: start: 20191211
  10. MIRTAZAPINE [Concomitant]
     Active Substance: MIRTAZAPINE
     Dosage: 1 DOSAGE FORM
     Route: 048
     Dates: start: 20191211
  11. GABAPENTIN [Concomitant]
     Active Substance: GABAPENTIN
     Dosage: 2 DOSAGE FORM, TID
     Route: 048
     Dates: start: 20191211
  12. WARFARIN [Concomitant]
     Active Substance: WARFARIN
  13. TAMSULOSIN [Concomitant]
     Active Substance: TAMSULOSIN
     Dosage: UNK UNK, QD
     Dates: start: 20191211
  14. PRAVASTATIN [Concomitant]
     Active Substance: PRAVASTATIN
     Dosage: 1 DOSAGE FORM, QD
     Dates: start: 20191211
  15. PERINDOPRIL [Concomitant]
     Active Substance: PERINDOPRIL
     Dosage: 1 DOSAGE FORM
     Dates: start: 20191211
  16. BISOPROLOL [Concomitant]
     Active Substance: BISOPROLOL
     Dosage: UNK
     Dates: start: 20191211
  17. SPIRIVA [Concomitant]
     Active Substance: TIOTROPIUM BROMIDE MONOHYDRATE
     Dosage: 1 DOSAGE FORM
     Dates: start: 20191211
  18. Ratio-salbutamol [Concomitant]
     Dosage: UNK
     Dates: start: 20191211
  19. ZENHALE [Concomitant]
     Active Substance: FORMOTEROL FUMARATE\MOMETASONE FUROATE
  20. NICORETTE [Concomitant]
     Active Substance: NICOTINE
     Dosage: UNK
     Dates: start: 20191211
  21. PREDNISONE [Concomitant]
     Active Substance: PREDNISONE
     Dosage: UNK UNK, QD
     Dates: start: 20200401
  22. ROFLUMILAST [Concomitant]
     Active Substance: ROFLUMILAST
     Dosage: 250 MILLIGRAM
     Dates: start: 20191211
  23. AZITHROMYCIN MONOHYDRATE [Concomitant]
     Active Substance: AZITHROMYCIN MONOHYDRATE
     Dosage: 250 MILLIGRAM, QD
     Route: 048
     Dates: start: 20191211
  24. ALVESCO [Concomitant]
     Active Substance: CICLESONIDE
     Dosage: UNK
     Dates: start: 20200416
  25. SINGULAIR [Concomitant]
     Active Substance: MONTELUKAST SODIUM
     Dosage: UNK UNK, QD
     Dates: start: 20200331

REACTIONS (5)
  - Haemorrhage [Unknown]
  - Injection site haemorrhage [Unknown]
  - Injection site swelling [Unknown]
  - Infusion site urticaria [Unknown]
  - Infection [Unknown]

NARRATIVE: CASE EVENT DATE: 20200519
